FAERS Safety Report 9697371 (Version 1)
Quarter: 2013Q4

REPORT INFORMATION
  Report Type: Spontaneous
  Country: US (occurrence: None)
  Receive Date: 20131119
  Receipt Date: 20131119
  Transmission Date: 20140711
  Serious: Yes (Hospitalization)
  Sender: FDA-Public Use
  Company Number: None

PATIENT
  Age: 69 Year
  Sex: Male
  Weight: 115.6 kg

DRUGS (1)
  1. VANCOMYCIN [Suspect]
     Indication: EXTRADURAL ABSCESS
     Route: 042
     Dates: start: 20130923, end: 20131029

REACTIONS (1)
  - Drug reaction with eosinophilia and systemic symptoms [None]
